FAERS Safety Report 6054480-9 (Version None)
Quarter: 2009Q1

REPORT INFORMATION
  Report Type: 
  Country: None (occurrence: None)
  Receive Date: 20090127
  Receipt Date: 20090121
  Transmission Date: 20090719
  Serious: Yes (Other)
  Sender: FDA-Public Use
  Company Number: US-ABBOTT-09P-163-0499008-00

PATIENT
  Age: 50 Year

DRUGS (1)
  1. NIMBEX [Suspect]
     Indication: NEUROMUSCULAR BLOCKADE

REACTIONS (1)
  - HYPERTHERMIA MALIGNANT [None]
